FAERS Safety Report 6476333 (Version 3)
Quarter: 2012Q4

REPORT INFORMATION
  Report Type: 
  Country: US (occurrence: US)
  Receive Date: 20071128
  Receipt Date: 20121213
  Transmission Date: 20130627
  Serious: Yes (Hospitalization, Other)
  Sender: FDA-Public Use
  Company Number: US-ASTRAZENECA-2007UW26823

PATIENT
  Age: 80 Year
  Sex: Female
  Weight: 68 kg

DRUGS (11)
  1. SEROQUEL [Suspect]
     Indication: SCHIZOPHRENIA
     Route: 048
     Dates: start: 2005
  2. SEROQUEL [Suspect]
     Indication: SCHIZOPHRENIA
     Route: 048
  3. ENBREL [Concomitant]
  4. ATENOLOL [Concomitant]
     Indication: BLOOD PRESSURE
     Route: 048
  5. ENALAPRIL [Concomitant]
  6. LORAZEPAM [Concomitant]
  7. ACTONEL [Concomitant]
  8. PRIMIDONE [Concomitant]
  9. CALCIUM WITH VITAMIN D [Concomitant]
     Dosage: 2 A DAY
  10. MULTIVITE 50 AND OVER [Concomitant]
  11. ASPIRIN [Concomitant]

REACTIONS (8)
  - Hip fracture [Unknown]
  - Cerebrovascular accident [Unknown]
  - Abnormal behaviour [Unknown]
  - Fall [Unknown]
  - Thinking abnormal [Unknown]
  - Malaise [Unknown]
  - Anxiety [Unknown]
  - Sedation [Unknown]
